FAERS Safety Report 17315352 (Version 1)
Quarter: 2020Q1

REPORT INFORMATION
  Report Type: Spontaneous
  Country: US (occurrence: US)
  Receive Date: 20200124
  Receipt Date: 20200124
  Transmission Date: 20200409
  Serious: No
  Sender: FDA-Public Use
  Company Number: US-VERTEX PHARMACEUTICALS-2020-000954

PATIENT
  Sex: Male

DRUGS (8)
  1. FLOVENT HFA [Concomitant]
     Active Substance: FLUTICASONE PROPIONATE
  2. PULMOZYME [Concomitant]
     Active Substance: DORNASE ALFA
  3. SMZ-TMP [Concomitant]
     Active Substance: SULFAMETHOXAZOLE\TRIMETHOPRIM
  4. AMOXICLAV [Concomitant]
     Active Substance: AMOXICILLIN\CLAVULANATE POTASSIUM
  5. CREON [Concomitant]
     Active Substance: PANCRELIPASE AMYLASE\PANCRELIPASE LIPASE\PANCRELIPASE PROTEASE
  6. VITAMIN D [COLECALCIFEROL] [Concomitant]
     Active Substance: CHOLECALCIFEROL
  7. ONDANSETRON [Concomitant]
     Active Substance: ONDANSETRON
  8. SYMDEKO [Suspect]
     Active Substance: IVACAFTOR\TEZACAFTOR
     Indication: CYSTIC FIBROSIS
     Dosage: 1 TAB (100MG TEZACAFTOR/150MG IVACAFTOR) AM AND 1 TAB (150MG IVACAFTOR) PM
     Route: 048
     Dates: start: 20190911

REACTIONS (1)
  - Respiratory tract congestion [Unknown]
